FAERS Safety Report 9019504 (Version 1)
Quarter: 2013Q1

REPORT INFORMATION
  Report Type: Spontaneous
  Country: PL (occurrence: PL)
  Receive Date: 20130118
  Receipt Date: 20130118
  Transmission Date: 20140127
  Serious: Yes (Other)
  Sender: FDA-Public Use
  Company Number: PL-B.I. PHARMACEUTICALS,INC./RIDGEFIELD-2013-BI-01109BY

PATIENT
  Age: 42 Year
  Sex: Female

DRUGS (11)
  1. TELMISARTAN [Suspect]
     Indication: HYPERTENSION
     Dosage: 80 MG
     Route: 065
  2. AMLODIPINE [Suspect]
     Indication: HYPERTENSION
     Dosage: 10 MG
     Route: 065
  3. CAPTOPRIL [Suspect]
     Indication: HYPERTENSION
     Dosage: 25 MG
     Route: 065
  4. RAMIPRIL [Suspect]
     Indication: HYPERTENSION
     Dosage: 10 MG
     Route: 065
  5. MODURETIC [Suspect]
     Indication: HYPERTENSION
     Dosage: 50/5, 1X1
     Route: 065
  6. BISOPROLOL [Suspect]
     Indication: HYPERTENSION
     Dosage: 10 MG
     Route: 065
  7. METOPROLOL [Suspect]
     Indication: HYPERTENSION
     Dosage: 100 MG
  8. METOPROLOL [Suspect]
     Dosage: 50 MG
  9. QUINAPRIL [Suspect]
     Indication: HYPERTENSION
     Dosage: 40 MG
     Route: 065
  10. HYDROCHLOROTHIAZIDE [Suspect]
     Indication: HYPERTENSION
     Dosage: 25 MG
     Route: 065
  11. DOXAZOSIN [Suspect]
     Indication: HYPERTENSION
     Dosage: 4 MG
     Route: 065

REACTIONS (3)
  - Ventricular dysfunction [Unknown]
  - Cardiomyopathy [Unknown]
  - Treatment failure [Unknown]
